FAERS Safety Report 10163888 (Version 1)
Quarter: 2014Q2

REPORT INFORMATION
  Report Type: Report from Study
  Country: AR (occurrence: AR)
  Receive Date: 20140510
  Receipt Date: 20140510
  Transmission Date: 20141212
  Serious: Yes (Other)
  Sender: FDA-Public Use
  Company Number: PHHY2014AR056605

PATIENT
  Sex: Male

DRUGS (1)
  1. STALEVO [Suspect]
     Dosage: 1.5 DF, DAILY (100 MG)
     Route: 048

REACTIONS (2)
  - Quadriplegia [Unknown]
  - Cerebrovascular accident [Unknown]
